FAERS Safety Report 4597591-7 (Version None)
Quarter: 2005Q1

REPORT INFORMATION
  Report Type: 
  Country: None (occurrence: None)
  Receive Date: 20050228
  Receipt Date: 20050228
  Transmission Date: 20050727
  Serious: Yes (Life-Threatening, Hospitalization)
  Sender: FDA-Public Use
  Company Number: None

PATIENT
  Age: 57 Year
  Sex: Female
  Weight: 77.1115 kg

DRUGS (12)
  1. CRESTOR [Suspect]
     Indication: BLOOD CHOLESTEROL INCREASED
     Dosage: 10 MG DAILY ORAL
     Route: 048
     Dates: start: 20040406, end: 20041021
  2. GENGRAF [Concomitant]
  3. LISINOPRIL [Concomitant]
  4. HEMOCYTE PLUS [Concomitant]
  5. DEMADEX [Concomitant]
  6. PROTONIX [Concomitant]
  7. FOLIC ACID [Concomitant]
  8. PREDNISONE [Concomitant]
  9. HUMALOG [Concomitant]
  10. ASPIRIN [Concomitant]
  11. MIACALCIN [Concomitant]
  12. LOTMEL [Concomitant]

REACTIONS (9)
  - ABDOMINAL PAIN [None]
  - BLOOD CREATININE INCREASED [None]
  - CHROMATURIA [None]
  - DIALYSIS [None]
  - DIARRHOEA [None]
  - KIDNEY TRANSPLANT REJECTION [None]
  - MALAISE [None]
  - PYREXIA [None]
  - VOMITING [None]
